FAERS Safety Report 9902264 (Version 2)
Quarter: 2014Q1

REPORT INFORMATION
  Report Type: Spontaneous
  Country: FR (occurrence: FR)
  Receive Date: 20140217
  Receipt Date: 20140217
  Transmission Date: 20141002
  Serious: Yes (Hospitalization, Other)
  Sender: FDA-Public Use
  Company Number: FR-PFIZER INC-2013327549

PATIENT
  Age: 26 Year
  Sex: Female

DRUGS (5)
  1. ZYVOXID [Suspect]
     Indication: PULMONARY TUBERCULOSIS
     Dosage: 600 MG, 1X/DAY
     Route: 048
     Dates: start: 20130524, end: 20131015
  2. IZILOX [Suspect]
     Indication: PULMONARY TUBERCULOSIS
     Dosage: 400 MG, 1X/DAY
     Route: 048
     Dates: start: 20130524, end: 20131015
  3. PIRILENE [Concomitant]
     Indication: PULMONARY TUBERCULOSIS
     Dosage: 500 MG, DAILY
  4. NICOBION [Concomitant]
     Indication: PULMONARY TUBERCULOSIS
     Dosage: UNK
  5. PRINCI-B [Concomitant]
     Indication: PULMONARY TUBERCULOSIS
     Dosage: UNK

REACTIONS (3)
  - Off label use [Unknown]
  - Polyneuropathy [Not Recovered/Not Resolved]
  - Electrocardiogram QT prolonged [Unknown]
